FAERS Safety Report 12683923 (Version 1)
Quarter: 2016Q3

REPORT INFORMATION
  Report Type: Spontaneous
  Country: CH (occurrence: CH)
  Receive Date: 20160825
  Receipt Date: 20160825
  Transmission Date: 20161109
  Serious: Yes (Hospitalization)
  Sender: FDA-Public Use
  Company Number: CH-PFIZER INC-2016393861

PATIENT
  Age: 71 Year
  Sex: Female

DRUGS (10)
  1. CREON [Concomitant]
     Active Substance: PANCRELIPASE AMYLASE\PANCRELIPASE LIPASE\PANCRELIPASE PROTEASE
     Dosage: 1 DF, 3X/DAY
  2. NOVORAPID 100 IU/ML [Concomitant]
     Dosage: ACCORDING TO SCHEMA
  3. NOVALGIN [Concomitant]
     Active Substance: METAMIZOLE SODIUM
     Dosage: 500 MG, 3X/DAY
  4. GUTRON [Concomitant]
     Active Substance: MIDODRINE
     Dosage: 3X/DAY
  5. FRAGMIN [Suspect]
     Active Substance: DALTEPARIN SODIUM
     Indication: PULMONARY EMBOLISM
     Dosage: 15000IU 1XDAY
     Route: 048
     Dates: start: 201606, end: 20160801
  6. LEVEMIR 100IU/ML [Concomitant]
     Dosage: 8 DF, 1X/DAY
  7. PASPERTIN /00041902/ [Concomitant]
     Active Substance: METOCLOPRAMIDE HYDROCHLORIDE
     Dosage: 10 MG, 3X/DAY
     Route: 048
  8. ONDANSETRON TEVA /00955301/ [Concomitant]
     Dosage: 4 MG, 2X/DAY
  9. TOREM /01036501/ [Concomitant]
     Active Substance: TORSEMIDE
     Dosage: 10 MG, 1X/DAY
  10. TARGIN [Concomitant]
     Active Substance: NALOXONE HYDROCHLORIDE\OXYCODONE HYDROCHLORIDE
     Dosage: UNK, AS NEEDED

REACTIONS (3)
  - Haematemesis [Not Recovered/Not Resolved]
  - Hypokalaemia [Unknown]
  - Dizziness postural [Unknown]

NARRATIVE: CASE EVENT DATE: 20160731
